FAERS Safety Report 8137442-7 (Version None)
Quarter: 2012Q1

REPORT INFORMATION
  Report Type: 
  Country: None (occurrence: None)
  Receive Date: 20120209
  Receipt Date: 20120207
  Transmission Date: 20120608
  Serious: Yes (Death)
  Sender: FDA-Public Use
  Company Number: 2011SP054938

PATIENT

DRUGS (1)
  1. REMERON [Suspect]
     Indication: DEPRESSION
     Dosage: ;PO
     Route: 048

REACTIONS (1)
  - COMPLETED SUICIDE [None]
